FAERS Safety Report 7088809-X (Version None)
Quarter: 2010Q4

REPORT INFORMATION
  Report Type: 
  Country: None (occurrence: None)
  Receive Date: 20101108
  Receipt Date: 20101027
  Transmission Date: 20110411
  Serious: Yes (Other)
  Sender: FDA-Public Use
  Company Number: PHHY2010GR73087

PATIENT
  Age: 75 Year
  Sex: Female

DRUGS (2)
  1. MYFORTIC [Suspect]
     Route: 048
  2. CORTICOSTEROIDS [Concomitant]

REACTIONS (1)
  - PANCYTOPENIA [None]
